FAERS Safety Report 5156832-8 (Version None)
Quarter: 2006Q4

REPORT INFORMATION
  Report Type: 
  Country: None (occurrence: None)
  Receive Date: 20061114
  Receipt Date: 20061102
  Transmission Date: 20070319
  Serious: Yes (Hospitalization)
  Sender: FDA-Public Use
  Company Number: HQWYE172102NOV06

PATIENT
  Age: 60 Year
  Sex: Male

DRUGS (10)
  1. PANTOPRAZOLE SODIUM [Suspect]
     Dosage: 20 MG 2 X PER 1 DAY ORAL
     Route: 048
  2. LESCOL [Suspect]
     Dosage: 80 MG 1X PEWR 1 DAY ORAL
     Route: 048
     Dates: start: 20060228, end: 20060328
  3. PLAVIX [Suspect]
     Dosage: 75 MG 1X PER 1 DAY ORAL
     Route: 048
     Dates: start: 20060228
  4. SANDIMMUNE [Suspect]
     Dosage: 75 MG 1X PER 1 DAY ORAL
     Route: 048
     Dates: start: 20060228
  5. ASPIRIN [Concomitant]
  6. CELLCEPT [Concomitant]
  7. PREDNISONE TAB [Concomitant]
  8. NEURONTIN [Concomitant]
  9. METOPROLOL TARTRATE [Concomitant]
  10. BETASERC (BETAHISTINE HYDROCHLORIDE) [Concomitant]

REACTIONS (2)
  - MEDICATION ERROR [None]
  - RHABDOMYOLYSIS [None]
